FAERS Safety Report 10167876 (Version 2)
Quarter: 2014Q2

REPORT INFORMATION
  Report Type: Spontaneous
  Country: DE (occurrence: DE)
  Receive Date: 20140512
  Receipt Date: 20140512
  Transmission Date: 20141212
  Serious: Yes (Hospitalization)
  Sender: FDA-Public Use
  Company Number: DE-UCBSA-117857

PATIENT
  Age: 76 Year
  Sex: Male
  Weight: 85 kg

DRUGS (6)
  1. NEUPRO [Suspect]
     Indication: PARKINSON^S DISEASE
     Dosage: 2 MG
     Dates: end: 201402
  2. NEUPRO [Suspect]
     Indication: PARKINSON^S DISEASE
     Dates: start: 20140224, end: 20140225
  3. STALEVO [Concomitant]
     Indication: PARKINSON^S DISEASE
     Dosage: DOSE PER INTAKE: 50, FREQUENCY: 4 TIMES
     Route: 048
     Dates: start: 20131016
  4. EXELON [Concomitant]
     Indication: PARKINSON^S DISEASE
     Dosage: DOSE PER INTAKE: 9.5, FREQUENCY: 1TIME
     Route: 062
     Dates: start: 20120220
  5. EXELON [Concomitant]
     Indication: DEMENTIA
     Dosage: DOSE PER INTAKE: 9.5, FREQUENCY: 1TIME
     Route: 062
     Dates: start: 20120220
  6. MADOPAR LT [Concomitant]
     Indication: PARKINSON^S DISEASE
     Dosage: DOSE PER INTAKE: 100, FREQUENCY: 1X2
     Route: 048
     Dates: start: 20131127

REACTIONS (1)
  - Disturbance in attention [Recovered/Resolved]
